FAERS Safety Report 21659444 (Version 1)
Quarter: 2022Q4

REPORT INFORMATION
  Report Type: Spontaneous
  Country: FR (occurrence: FR)
  Receive Date: 20221129
  Receipt Date: 20221129
  Transmission Date: 20230113
  Serious: Yes (Hospitalization, Other)
  Sender: FDA-Public Use
  Company Number: FR-ANIPHARMA-2022-FR-000232

PATIENT
  Age: 55 Year
  Sex: Male
  Weight: 82 kg

DRUGS (8)
  1. CANDESARTAN CILEXETIL [Suspect]
     Active Substance: CANDESARTAN CILEXETIL
     Indication: Hypertension
     Dosage: 16 MG DAILY
     Route: 048
     Dates: end: 20220709
  2. PROPRANOLOL [Suspect]
     Active Substance: PROPRANOLOL HYDROCHLORIDE
     Dosage: 80 MG DAILY
     Route: 048
     Dates: end: 20220713
  3. ESIDREX [Suspect]
     Active Substance: HYDROCHLOROTHIAZIDE
     Dosage: 12.5 MG DAILY
     Route: 048
     Dates: end: 20220709
  4. KETOCONAZOLE [Suspect]
     Active Substance: KETOCONAZOLE
     Dosage: TITRATION FROM 21 TO 27 OCT 2021, FROM 200 MG TO 800 MG / 600 MG DAILY /TITRATION FROM 21 TO 27 OCT
     Route: 048
     Dates: start: 20211021, end: 20220714
  5. PANTOPRAZOLE [Concomitant]
     Active Substance: PANTOPRAZOLE
     Dosage: 20 MG DAILY
     Route: 048
  6. ELIQUIS [Concomitant]
     Active Substance: APIXABAN
     Dosage: 10 MG DAILY
     Route: 048
  7. LAMALINE [Concomitant]
     Dosage: AS NEEDED
     Route: 048
     Dates: end: 20220714
  8. TRIMEBUTINE [Concomitant]
     Active Substance: TRIMEBUTINE
     Dosage: 300 MG DAILY
     Route: 048

REACTIONS (7)
  - Adrenocortical insufficiency acute [Recovered/Resolved]
  - Hepatic cytolysis [Recovered/Resolved]
  - Mixed liver injury [Recovered/Resolved]
  - Acute kidney injury [Recovered/Resolved]
  - Hyperkalaemia [Recovered/Resolved]
  - Gamma-glutamyltransferase increased [Recovering/Resolving]
  - Sinus bradycardia [Recovered/Resolved]

NARRATIVE: CASE EVENT DATE: 20211202
